FAERS Safety Report 5248024-9 (Version None)
Quarter: 2007Q1

REPORT INFORMATION
  Report Type: 
  Country: None (occurrence: None)
  Receive Date: 20070222
  Receipt Date: 20070201
  Transmission Date: 20070707
  Serious: Yes (Death, Life-Threatening, Hospitalization)
  Sender: FDA-Public Use
  Company Number: NL200605006685

PATIENT
  Age: 70 Year
  Sex: Male

DRUGS (1)
  1. PEMETREXED(PEMETREXED UNKNOWN FORMULATION) UNKNOWN [Suspect]
     Indication: NON-SMALL CELL LUNG CANCER
     Dosage: 500 MG/M2, DAY 1 OF 21 DAY CYCLE, INTRAVENOUS
     Route: 042
     Dates: start: 20060510

REACTIONS (4)
  - ABDOMINAL PAIN UPPER [None]
  - ASCITES [None]
  - CONSTIPATION [None]
  - MALIGNANT NEOPLASM PROGRESSION [None]
